FAERS Safety Report 7652389-8 (Version None)
Quarter: 2011Q3

REPORT INFORMATION
  Report Type: 
  Country: None (occurrence: None)
  Receive Date: 20110728
  Receipt Date: 20110712
  Transmission Date: 20111222
  Serious: Yes (Life-Threatening, Hospitalization)
  Sender: FDA-Public Use
  Company Number: 1000022395

PATIENT
  Age: 89 Year
  Sex: Male

DRUGS (3)
  1. CORDARONE [Concomitant]
  2. COZAAR [Concomitant]
  3. ESCITALOPRAM [Suspect]
     Indication: DEPRESSION
     Dosage: 5 MG (5 MG, 1 IN 1 D),
     Dates: start: 20110530

REACTIONS (4)
  - DEHYDRATION [None]
  - DIARRHOEA [None]
  - DECREASED APPETITE [None]
  - HYPONATRAEMIA [None]
